FAERS Safety Report 12478512 (Version 1)
Quarter: 2016Q2

REPORT INFORMATION
  Report Type: Spontaneous
  Country: GB (occurrence: GB)
  Receive Date: 20160618
  Receipt Date: 20160618
  Transmission Date: 20160815
  Serious: Yes (Hospitalization)
  Sender: FDA-Public Use
  Company Number: GB-009507513-1606GBR006583

PATIENT
  Age: 40 Year
  Weight: 84.5 kg

DRUGS (22)
  1. DARBEPOETIN ALFA [Concomitant]
     Active Substance: DARBEPOETIN ALFA
  2. FUROSEMIDE. [Concomitant]
     Active Substance: FUROSEMIDE
  3. AMLODIPINE [Concomitant]
     Active Substance: AMLODIPINE BESYLATE
  4. ENOXAPARIN SODIUM. [Concomitant]
     Active Substance: ENOXAPARIN SODIUM
  5. FLUOXETINE [Concomitant]
     Active Substance: FLUOXETINE HYDROCHLORIDE
  6. FOLIC ACID. [Concomitant]
     Active Substance: FOLIC ACID
  7. METOCLOPRAMIDE. [Concomitant]
     Active Substance: METOCLOPRAMIDE
  8. ALBUTEROL. [Concomitant]
     Active Substance: ALBUTEROL
  9. BECLOMETHASONE DIPROPIONATE [Concomitant]
     Active Substance: BECLOMETHASONE DIPROPIONATE
  10. DOXAZOSIN [Concomitant]
     Active Substance: DOXAZOSIN\DOXAZOSIN MESYLATE
  11. LOPERAMIDE [Concomitant]
     Active Substance: LOPERAMIDE
  12. OMEPRAZOLE. [Concomitant]
     Active Substance: OMEPRAZOLE
  13. PREGABALIN. [Concomitant]
     Active Substance: PREGABALIN
  14. HYDROXYZINE HYDROCHLORIDE. [Concomitant]
     Active Substance: HYDROXYZINE HYDROCHLORIDE
  15. LEVEMIR [Concomitant]
     Active Substance: INSULIN DETEMIR
  16. CLINDAMYCIN [Concomitant]
     Active Substance: CLINDAMYCIN\CLINDAMYCIN PHOSPHATE
     Indication: OSTEOMYELITIS
     Route: 048
     Dates: start: 20160427
  17. DIAZEPAM. [Concomitant]
     Active Substance: DIAZEPAM
  18. NOVORAPID [Concomitant]
     Active Substance: INSULIN ASPART
  19. FERROUS FUMARATE [Concomitant]
     Active Substance: FERROUS FUMARATE
  20. SEVELAMER [Concomitant]
     Active Substance: SEVELAMER
  21. FLOXACILLIN [Concomitant]
     Active Substance: FLUCLOXACILLIN
     Indication: DIABETIC FOOT
     Dosage: CHANGED TO ERTAPENEM
     Route: 042
     Dates: start: 20160419
  22. ERTAPENEM SODIUM [Suspect]
     Active Substance: ERTAPENEM SODIUM
     Indication: DIABETIC FOOT INFECTION
     Route: 042
     Dates: start: 20160430, end: 20160504

REACTIONS (3)
  - Visual acuity reduced [Unknown]
  - Encephalitis [Recovering/Resolving]
  - Generalised tonic-clonic seizure [Recovered/Resolved]

NARRATIVE: CASE EVENT DATE: 20160504
